FAERS Safety Report 5105343-4 (Version None)
Quarter: 2006Q3

REPORT INFORMATION
  Report Type: 
  Country: None (occurrence: None)
  Receive Date: 20060731
  Receipt Date: 20050817
  Transmission Date: 20061208
  Serious: Yes (Other)
  Sender: FDA-Public Use
  Company Number: US-JNJFOC-20050405573

PATIENT
  Age: 67 Year
  Sex: Female

DRUGS (6)
  1. RISPERDAL [Suspect]
     Indication: BIPOLAR DISORDER
     Dosage: 0.5 MG TO 1.0 MG DAY
     Dates: start: 19980101, end: 20050101
  2. RISPERDAL [Suspect]
     Indication: SCHIZOAFFECTIVE DISORDER
     Dosage: 0.5 MG TO 1.0 MG DAY
     Dates: start: 19980101, end: 20050101
  3. DEPAKOTE [Concomitant]
  4. LAMICTAL [Concomitant]
  5. EFFEXOR XR [Concomitant]
  6. KLONOPIN [Concomitant]

REACTIONS (2)
  - TARDIVE DYSKINESIA [None]
  - TREMOR [None]
